FAERS Safety Report 15825761 (Version 2)
Quarter: 2019Q1

REPORT INFORMATION
  Report Type: Spontaneous
  Country: US (occurrence: US)
  Receive Date: 20190115
  Receipt Date: 20190228
  Transmission Date: 20190417
  Serious: Yes (Other)
  Sender: FDA-Public Use
  Company Number: US-PFIZER INC-2019017291

PATIENT
  Age: 46 Year
  Sex: Female
  Weight: 158 kg

DRUGS (2)
  1. LYRICA [Suspect]
     Active Substance: PREGABALIN
     Indication: SCIATICA
     Dosage: 225 MG, DAILY (TAKES 1 IN MORNING AND 2 AT NIGHT)
     Route: 048
     Dates: start: 2016
  2. JENCYCLA [Concomitant]
     Active Substance: NORETHINDRONE
     Indication: CONTRACEPTION
     Dosage: 0.35 MG, DAILY
     Dates: start: 20180301, end: 20180629

REACTIONS (2)
  - Neoplasm malignant [Unknown]
  - Bronchitis chronic [Not Recovered/Not Resolved]

NARRATIVE: CASE EVENT DATE: 20180716
